FAERS Safety Report 17459966 (Version 1)
Quarter: 2020Q1

REPORT INFORMATION
  Report Type: Spontaneous
  Country: US (occurrence: US)
  Receive Date: 20200213
  Receipt Date: 20200213
  Transmission Date: 20200409
  Serious: No
  Sender: FDA-Public Use
  Company Number: None

PATIENT
  Age: 59 Year
  Sex: Female

DRUGS (2)
  1. OCALIVA [Suspect]
     Active Substance: OBETICHOLIC ACID
     Indication: PRIMARY BILIARY CHOLANGITIS
     Route: 048
     Dates: start: 20190411
  2. URSODIOL. [Concomitant]
     Active Substance: URSODIOL

REACTIONS (2)
  - Abdominal pain [None]
  - Therapy cessation [None]

NARRATIVE: CASE EVENT DATE: 202001
